FAERS Safety Report 9260405 (Version 1)
Quarter: 2013Q2

REPORT INFORMATION
  Report Type: Spontaneous
  Country: US (occurrence: US)
  Receive Date: 20130429
  Receipt Date: 20130429
  Transmission Date: 20140414
  Serious: No
  Sender: FDA-Public Use
  Company Number: US-PFIZER INC-2013133255

PATIENT
  Age: 48 Year
  Sex: Female
  Weight: 104 kg

DRUGS (8)
  1. ALPRAZOLAM [Suspect]
     Indication: DEPRESSION
     Dosage: 2MG DAILY
  2. ALPRAZOLAM [Suspect]
     Indication: ANXIETY
  3. ALPRAZOLAM [Suspect]
     Indication: DEPRESSION
     Dosage: 1 MG, 3X/DAY
  4. ALPRAZOLAM [Suspect]
     Indication: ANXIETY
  5. VENLAFAXINE XR [Suspect]
     Indication: DEPRESSION
     Dosage: 300 MG, UNK
  6. VENLAFAXINE XR [Suspect]
     Indication: ANXIETY
  7. TOPAMAX [Concomitant]
     Dosage: 50 MG, UNK
  8. FLEXERIL [Concomitant]
     Dosage: 20 MG, UNK

REACTIONS (4)
  - Drug ineffective [Unknown]
  - Withdrawal syndrome [Recovering/Resolving]
  - Hypoaesthesia [Recovering/Resolving]
  - Night sweats [Recovering/Resolving]
